FAERS Safety Report 8504727-1 (Version None)
Quarter: 2012Q3

REPORT INFORMATION
  Report Type: 
  Country: None (occurrence: None)
  Receive Date: 20120711
  Receipt Date: 20120627
  Transmission Date: 20120928
  Serious: Yes (Other)
  Sender: FDA-Public Use
  Company Number: CHPA2012US014665

PATIENT
  Sex: Female

DRUGS (2)
  1. EXCEDRIN EXTRA STRENGTH TABLETS [Suspect]
     Indication: HEADACHE
     Dosage: 0.5-2 DF, PRN
     Route: 048
  2. ASPIRIN [Suspect]
     Dosage: 1 DF, UNK

REACTIONS (6)
  - EMOTIONAL DISTRESS [None]
  - DRUG ADMINISTRATION ERROR [None]
  - UNDERDOSE [None]
  - OSTEOPOROSIS [None]
  - OSTEOPENIA [None]
  - WRONG TECHNIQUE IN DRUG USAGE PROCESS [None]
